FAERS Safety Report 5449149-5 (Version None)
Quarter: 2007Q3

REPORT INFORMATION
  Report Type: 
  Country: None (occurrence: None)
  Receive Date: 20070911
  Receipt Date: 20070905
  Transmission Date: 20080115
  Serious: Yes (Other)
  Sender: FDA-Public Use
  Company Number: IN-ROXANE LABORATORIES, INC-2007-BP-20639RO

PATIENT
  Age: 66 Year
  Sex: Male

DRUGS (6)
  1. DEXAMETHASONE 0.5MG TAB [Suspect]
     Indication: EYE INFLAMMATION
     Route: 031
  2. DEXAMETHASONE 0.5MG TAB [Suspect]
     Route: 042
  3. ACETAZOLAMIDE [Suspect]
     Route: 048
  4. MANNITOL [Concomitant]
     Route: 042
  5. TIMOLOL MALEATE [Concomitant]
     Route: 031
  6. OFLOXACIN [Concomitant]
     Route: 031

REACTIONS (2)
  - CHOROIDAL EFFUSION [None]
  - DRUG INEFFECTIVE [None]
